FAERS Safety Report 15406068 (Version 2)
Quarter: 2018Q4

REPORT INFORMATION
  Report Type: Spontaneous
  Country: US (occurrence: US)
  Receive Date: 20180920
  Receipt Date: 20181017
  Transmission Date: 20190204
  Serious: Yes (Hospitalization)
  Sender: FDA-Public Use
  Company Number: US-PFIZER INC-2018380592

PATIENT
  Sex: Female

DRUGS (2)
  1. ADVIL [Suspect]
     Active Substance: IBUPROFEN
     Indication: BACK PAIN
  2. ADVIL [Suspect]
     Active Substance: IBUPROFEN
     Indication: BACK DISORDER
     Dosage: 400 MG, DAILY (2/200 MG ONCE)
     Dates: start: 20180911

REACTIONS (4)
  - Dysphonia [Unknown]
  - Throat irritation [Unknown]
  - Dysphagia [Unknown]
  - Oropharyngeal pain [Unknown]

NARRATIVE: CASE EVENT DATE: 20180911
